FAERS Safety Report 24072280 (Version 3)
Quarter: 2025Q2

REPORT INFORMATION
  Report Type: Report from Study
  Country: FR (occurrence: FR)
  Receive Date: 20240710
  Receipt Date: 20250418
  Transmission Date: 20250716
  Serious: No
  Sender: TAKEDA
  Company Number: FR-TAKEDA-2024TUS069841

PATIENT
  Age: 67 Year
  Sex: Male

DRUGS (15)
  1. TEDUGLUTIDE [Suspect]
     Active Substance: TEDUGLUTIDE
     Indication: Short-bowel syndrome
     Dosage: 1.43 MILLIGRAM, QD
     Dates: start: 20191107, end: 20191210
  2. TEDUGLUTIDE [Suspect]
     Active Substance: TEDUGLUTIDE
     Dosage: 2 MILLIGRAM, QD
     Dates: start: 20191211, end: 20200505
  3. TEDUGLUTIDE [Suspect]
     Active Substance: TEDUGLUTIDE
     Dosage: 3 MILLIGRAM, QD
     Dates: start: 20200506, end: 20210112
  4. TEDUGLUTIDE [Suspect]
     Active Substance: TEDUGLUTIDE
     Dosage: 1.4 MILLIGRAM, QD
     Dates: start: 20210113, end: 20220406
  5. CARBIMAZOLE [Concomitant]
     Active Substance: CARBIMAZOLE
     Indication: Hyperthyroidism
     Dosage: 10 MICROGRAM, TID
     Dates: start: 20191009
  6. IMODIUM [Concomitant]
     Active Substance: LOPERAMIDE HYDROCHLORIDE
     Indication: Diarrhoea
     Dosage: UNK UNK, QID
  7. CODEINE PHOSPHATE [Concomitant]
     Active Substance: CODEINE PHOSPHATE
     Indication: Pain
     Dosage: UNK UNK, TID
  8. ESOMEPRAZOLE [Concomitant]
     Active Substance: ESOMEPRAZOLE
     Indication: Reflux gastritis
     Dosage: 40 MILLIGRAM, BID
  9. Calcidose [Concomitant]
     Indication: Calcium deficiency
     Dosage: 500 MILLIGRAM, BID
  10. CHOLECALCIFEROL [Concomitant]
     Active Substance: CHOLECALCIFEROL
     Indication: Vitamin D deficiency
  11. PAROXETINE HYDROCHLORIDE [Concomitant]
     Active Substance: PAROXETINE HYDROCHLORIDE
     Indication: Mental disorder
     Dosage: 20 MILLIGRAM, QD
  12. CLOTIAZEPAM [Concomitant]
     Active Substance: CLOTIAZEPAM
     Indication: Delirium tremens
     Dosage: 5 MILLIGRAM, QD
  13. TAMSULOSIN [Concomitant]
     Active Substance: TAMSULOSIN
     Indication: Benign prostatic hyperplasia
     Dosage: UNK UNK, QD
  14. URSODIOL [Concomitant]
     Active Substance: URSODIOL
     Indication: Hepatic cirrhosis
     Dosage: 500 MILLIGRAM, TID
  15. ACLASTA [Concomitant]
     Active Substance: ZOLEDRONIC ACID
     Indication: Osteoporosis

REACTIONS (1)
  - Leiomyoma [Recovered/Resolved]

NARRATIVE: CASE EVENT DATE: 20240322
